FAERS Safety Report 7646582-8 (Version None)
Quarter: 2011Q3

REPORT INFORMATION
  Report Type: 
  Country: None (occurrence: None)
  Receive Date: 20110725
  Receipt Date: 20110708
  Transmission Date: 20111222
  Serious: Yes (Life-Threatening, Hospitalization)
  Sender: FDA-Public Use
  Company Number: TCI2011A03844

PATIENT
  Age: 75 Year
  Sex: Male

DRUGS (9)
  1. AMARYL [Concomitant]
  2. BASEN TABLETS (VOGLIBOSE) [Concomitant]
  3. MOHRUS TAPE L (KETOPROFEN) [Concomitant]
  4. MUCOSTA (REBAMIPIDE) [Concomitant]
  5. METGLUCO (METFORMIN HYDROCHLORIDE) [Concomitant]
  6. ACTOS [Suspect]
     Indication: DIABETES MELLITUS
     Dosage: 15 MG (15 MG, 1 IN 1 D), PER ORAL, 30 MG ( 30 MG, 1 IN 1 D), PER ORAL
     Route: 048
     Dates: start: 20101119
  7. ACTOS [Suspect]
     Indication: DIABETES MELLITUS
     Dosage: 15 MG (15 MG, 1 IN 1 D), PER ORAL, 30 MG ( 30 MG, 1 IN 1 D), PER ORAL
     Route: 048
     Dates: start: 20090122, end: 20101118
  8. RABEPRAZOLE SODIUM [Concomitant]
  9. URSO 250 [Concomitant]

REACTIONS (5)
  - PROSTATOMEGALY [None]
  - BLOOD GLUCOSE INCREASED [None]
  - BLADDER CANCER [None]
  - GLUCOSE URINE PRESENT [None]
  - HAEMATURIA [None]
